FAERS Safety Report 6529970-2 (Version None)
Quarter: 2010Q1

REPORT INFORMATION
  Report Type: 
  Country: None (occurrence: None)
  Receive Date: 20100107
  Receipt Date: 20100105
  Transmission Date: 20100710
  Serious: Yes (Hospitalization)
  Sender: FDA-Public Use
  Company Number: DE-BRISTOL-MYERS SQUIBB COMPANY-14921688

PATIENT
  Age: 53 Year
  Sex: Female
  Weight: 86 kg

DRUGS (6)
  1. PACLITAXEL [Suspect]
     Indication: BREAST CANCER
     Dosage: DRUG INTERRUPTED ON 03DEC09
     Dates: start: 20091120
  2. CYCLOPHOSPHAMIDE [Suspect]
     Indication: BREAST CANCER
     Dates: start: 20090817
  3. RAD001 [Suspect]
     Indication: BREAST CANCER
     Dosage: DRUG INTERRUPTED ON 03DEC09
     Route: 048
     Dates: start: 20091119
  4. BEVACIZUMAB [Suspect]
     Indication: BREAST CANCER
     Dosage: DRUG INTERRUPTED ON 03DEC09
     Route: 048
     Dates: start: 20091119
  5. LAPATINIB [Suspect]
     Indication: BREAST CANCER
     Dosage: DRUG INTERRUPTED ON 03DEC09
     Route: 048
     Dates: start: 20091119
  6. EPIRUBICIN [Suspect]
     Indication: BREAST CANCER
     Dates: start: 20090817

REACTIONS (3)
  - ABDOMINAL PAIN [None]
  - DIARRHOEA [None]
  - MUCOSAL HAEMORRHAGE [None]
